FAERS Safety Report 16686696 (Version 2)
Quarter: 2019Q3

REPORT INFORMATION
  Report Type: Spontaneous
  Country: EG (occurrence: EG)
  Receive Date: 20190809
  Receipt Date: 20190903
  Transmission Date: 20191004
  Serious: Yes (Other)
  Sender: FDA-Public Use
  Company Number: EG-SA-2019SA206827

PATIENT
  Age: 20 Year
  Sex: Female

DRUGS (1)
  1. AUBAGIO [Suspect]
     Active Substance: TERIFLUNOMIDE
     Indication: MULTIPLE SCLEROSIS
     Dosage: UNK
     Dates: start: 2018

REACTIONS (2)
  - Hyperthyroidism [Unknown]
  - Tachycardia [Unknown]

NARRATIVE: CASE EVENT DATE: 201907
